FAERS Safety Report 25457814 (Version 2)
Quarter: 2025Q2

REPORT INFORMATION
  Report Type: Report from Study
  Country: HU (occurrence: HU)
  Receive Date: 20250619
  Receipt Date: 20250629
  Transmission Date: 20250716
  Serious: Yes (Death, Hospitalization, Other)
  Sender: ABBVIE
  Company Number: HU-ABBVIE-6331474

PATIENT
  Age: 73 Year
  Sex: Male

DRUGS (7)
  1. FOSCARBIDOPA\FOSLEVODOPA [Suspect]
     Active Substance: FOSCARBIDOPA\FOSLEVODOPA
     Indication: Parkinson^s disease
     Route: 058
     Dates: start: 20250602, end: 20250613
  2. NEBIVOLOL [Concomitant]
     Active Substance: NEBIVOLOL
     Indication: Hypertension
     Dosage: 10 MILLIGRAM, ?FORM STRENGTH: 5 MILLIGRAM
     Route: 048
  3. Saxotin [Concomitant]
     Indication: Diabetes mellitus
     Dosage: FORM STRENGTH: 50 MILLIGRAM
     Route: 048
  4. NEXIUM [Concomitant]
     Active Substance: ESOMEPRAZOLE MAGNESIUM
     Indication: Prophylaxis
     Dosage: FORM STRENGTH: 40 MILLIGRAM
     Route: 048
  5. AMANTADINE SULFATE [Concomitant]
     Active Substance: AMANTADINE SULFATE
     Indication: Parkinson^s disease
     Dosage: 200 MILLIGRAM, ?FORM STRENGTH: 100 MILLIGRAM
     Route: 048
  6. Scippa [Concomitant]
     Indication: Anxiety
     Dosage: 10 MILLIGRAM
     Route: 048
     Dates: start: 20250606
  7. IRBESARTAN [Concomitant]
     Active Substance: IRBESARTAN
     Indication: Hypertension
     Dosage: 600 MILLIGRAM?FORM STRENGTH: 300 MILLIGRAM
     Route: 048

REACTIONS (8)
  - Renal failure [Fatal]
  - Pyrexia [Recovered/Resolved]
  - Infection [Unknown]
  - Muscle spasms [Not Recovered/Not Resolved]
  - Somnolence [Not Recovered/Not Resolved]
  - Dehydration [Recovered/Resolved]
  - Tremor [Not Recovered/Not Resolved]
  - Fluid intake reduced [Unknown]

NARRATIVE: CASE EVENT DATE: 20250101
